FAERS Safety Report 10197922 (Version 1)
Quarter: 2014Q2

REPORT INFORMATION
  Report Type: Spontaneous
  Country: US (occurrence: None)
  Receive Date: 20140523
  Receipt Date: 20140523
  Transmission Date: 20141212
  Serious: No
  Sender: FDA-Public Use
  Company Number: None

PATIENT
  Age: 44 Year
  Sex: Female
  Weight: 77.11 kg

DRUGS (1)
  1. COPAXON [Suspect]
     Indication: MULTIPLE SCLEROSIS
     Dosage: 20MG/1ML INJECTION
     Dates: start: 2005, end: 20140408

REACTIONS (1)
  - Hypersensitivity [None]
